FAERS Safety Report 8520934-6 (Version None)
Quarter: 2012Q3

REPORT INFORMATION
  Report Type: 
  Country: None (occurrence: None)
  Receive Date: 20120719
  Receipt Date: 20120716
  Transmission Date: 20120928
  Serious: No
  Sender: FDA-Public Use
  Company Number: US-PFIZER INC-2012171076

PATIENT
  Sex: Female

DRUGS (1)
  1. LYRICA [Suspect]
     Indication: SPINAL CORD INJURY
     Dosage: 75 MG, 2X/DAY
     Dates: start: 20120601

REACTIONS (1)
  - DRUG INEFFECTIVE [None]
